FAERS Safety Report 9243204 (Version 1)
Quarter: 2013Q2

REPORT INFORMATION
  Report Type: Spontaneous
  Country: US (occurrence: US)
  Receive Date: 20130419
  Receipt Date: 20130419
  Transmission Date: 20140414
  Serious: No
  Sender: FDA-Public Use
  Company Number: US-ASTRAZENECA-2013SE22347

PATIENT
  Sex: Male

DRUGS (2)
  1. BRILINTA [Suspect]
     Route: 048
  2. UNKNOWN MEDICATION [Concomitant]

REACTIONS (4)
  - Adverse drug reaction [Unknown]
  - Aphagia [Unknown]
  - Abasia [Unknown]
  - Dyspnoea [Unknown]
